FAERS Safety Report 5658886-9 (Version None)
Quarter: 2008Q1

REPORT INFORMATION
  Report Type: 
  Country: None (occurrence: None)
  Receive Date: 20080310
  Receipt Date: 20070730
  Transmission Date: 20080703
  Serious: No
  Sender: FDA-Public Use
  Company Number: US-BAYER-200711365BCC

PATIENT
  Age: 13 Month
  Sex: Male
  Weight: 9.072 kg

DRUGS (2)
  1. ALEVE [Suspect]
     Indication: ACCIDENTAL EXPOSURE
     Route: 048
     Dates: start: 20070430
  2. ASPIRIN [Concomitant]

REACTIONS (1)
  - DYSGEUSIA [None]
